FAERS Safety Report 17476782 (Version 2)
Quarter: 2022Q3

REPORT INFORMATION
  Report Type: Report from Study
  Country: US (occurrence: US)
  Receive Date: 20200228
  Receipt Date: 20220720
  Transmission Date: 20221027
  Serious: Yes (Hospitalization, Other)
  Sender: FDA-Public Use
  Company Number: US-JNJFOC-20190307893

PATIENT
  Age: 23 Year
  Sex: Female
  Weight: 97.98 kg

DRUGS (24)
  1. STELARA [Suspect]
     Active Substance: USTEKINUMAB
     Indication: Psoriasis
     Dosage: 4 YEAR
     Route: 058
     Dates: start: 20180815, end: 20190811
  2. STELARA [Suspect]
     Active Substance: USTEKINUMAB
     Indication: Psoriatic arthropathy
  3. CAFFEINE [Concomitant]
     Active Substance: CAFFEINE
     Dosage: 1.5 PER WEEK
     Route: 048
     Dates: start: 20181128
  4. CAFFEINE [Concomitant]
     Active Substance: CAFFEINE
     Route: 048
     Dates: start: 20190302, end: 20190302
  5. CAFFEINE [Concomitant]
     Active Substance: CAFFEINE
     Route: 048
     Dates: start: 20190301, end: 20190811
  6. CANNABIS SATIVA SUBSP. INDICA TOP [Concomitant]
     Active Substance: CANNABIS SATIVA SUBSP. INDICA TOP
     Route: 048
     Dates: start: 20181230, end: 20181230
  7. PROTONIX [Concomitant]
     Active Substance: PANTOPRAZOLE SODIUM
     Indication: Gastrooesophageal reflux disease
     Route: 048
     Dates: start: 20181128
  8. RANITIDINE [Concomitant]
     Active Substance: RANITIDINE
     Indication: Gastrooesophageal reflux disease
     Route: 048
     Dates: start: 20181128
  9. TYLENOL [Concomitant]
     Active Substance: ACETAMINOPHEN
     Indication: Arthritis
     Dosage: 2 PILLS
     Route: 048
     Dates: start: 20181128, end: 20190703
  10. TYLENOL [Concomitant]
     Active Substance: ACETAMINOPHEN
     Indication: Pain
     Route: 048
     Dates: start: 20190704, end: 20190809
  11. TYLENOL [Concomitant]
     Active Substance: ACETAMINOPHEN
     Indication: Symphysiolysis
     Route: 048
     Dates: start: 20190725, end: 20190726
  12. ZOFRAN [Concomitant]
     Active Substance: ONDANSETRON HYDROCHLORIDE
     Indication: Nausea
     Route: 048
     Dates: start: 20190210, end: 20190215
  13. ZOFRAN [Concomitant]
     Active Substance: ONDANSETRON HYDROCHLORIDE
     Indication: Multiple allergies
     Route: 048
     Dates: start: 20181128, end: 20190809
  14. ZYRTEC [Concomitant]
     Active Substance: CETIRIZINE HYDROCHLORIDE
     Indication: Multiple allergies
     Route: 048
     Dates: start: 20181128
  15. ALBUTEROL [Concomitant]
     Active Substance: ALBUTEROL
     Indication: Respiratory disorder
     Dosage: 3.5
     Route: 045
     Dates: start: 20190222, end: 20190415
  16. ALBUTEROL [Concomitant]
     Active Substance: ALBUTEROL
     Indication: Asthma
     Route: 045
     Dates: start: 20190423, end: 20190723
  17. BENADRYL                           /00000402/ [Concomitant]
     Indication: Pruritus
     Dosage: 1 PILL
     Route: 048
     Dates: start: 20190725, end: 20190726
  18. BENADRYL                           /00000402/ [Concomitant]
     Dosage: 1 PILL
     Route: 048
     Dates: start: 20190727, end: 20190811
  19. CANNABIS SATIVA SUBSP. INDICA TOP [Concomitant]
     Active Substance: CANNABIS SATIVA SUBSP. INDICA TOP
     Route: 048
     Dates: start: 20181230, end: 20181230
  20. PRENATAL VITAMINS                  /02014401/ [Concomitant]
     Dosage: 1 PILL
     Route: 048
     Dates: start: 20181030, end: 20190811
  21. PROTONIX                           /00661201/ [Concomitant]
     Indication: Gastrooesophageal reflux disease
     Route: 048
     Dates: start: 20181128, end: 20190811
  22. RANITIDINE HYDROCHLORIDE [Concomitant]
     Active Substance: RANITIDINE HYDROCHLORIDE
     Indication: Gastrooesophageal reflux disease
     Route: 048
     Dates: start: 20181128, end: 20190811
  23. ROBITUSSIN                         /00048001/ [Concomitant]
     Indication: Bronchitis
     Route: 048
     Dates: start: 20180330, end: 20190412
  24. TUMS                               /00193601/ [Concomitant]
     Indication: Gastrooesophageal reflux disease
     Dosage: 4 PILLS
     Route: 048
     Dates: start: 20190710, end: 20190809

REACTIONS (4)
  - Cholestasis [Unknown]
  - Fall [Unknown]
  - Injury [Unknown]
  - Exposure during pregnancy [Recovered/Resolved]

NARRATIVE: CASE EVENT DATE: 20181128
